FAERS Safety Report 7220359 (Version 2)
Quarter: 2012Q4

REPORT INFORMATION
  Report Type: 
  Country: US (occurrence: US)
  Receive Date: 20091216
  Receipt Date: 20121213
  Transmission Date: 20130627
  Serious: Yes (Hospitalization, Other)
  Sender: FDA-Public Use
  Company Number: US-BAYER-200942492NA

PATIENT
  Age: 43 Year
  Sex: Female
  Weight: 63.49 kg

DRUGS (3)
  1. YAZ [Suspect]
     Indication: CONTRACEPTION
     Dosage: UNK
     Route: 048
     Dates: start: 200608, end: 200712
  2. IBUPROFEN [Concomitant]
  3. ASCORBIC ACID [Concomitant]

REACTIONS (7)
  - Pulmonary embolism [None]
  - Deep vein thrombosis [None]
  - Menorrhagia [None]
  - Loss of consciousness [None]
  - Vomiting [None]
  - Dizziness [None]
  - Disorientation [None]
